FAERS Safety Report 13977726 (Version 1)
Quarter: 2017Q3

REPORT INFORMATION
  Report Type: Spontaneous
  Country: US (occurrence: US)
  Receive Date: 20170915
  Receipt Date: 20170915
  Transmission Date: 20171128
  Serious: Yes (Death)
  Sender: FDA-Public Use
  Company Number: US-ABBVIE-17P-163-2098175-00

PATIENT
  Age: 80 Year
  Sex: Female

DRUGS (1)
  1. SYNTHROID [Suspect]
     Active Substance: LEVOTHYROXINE SODIUM
     Indication: HYPERTHYROIDISM
     Route: 048
     Dates: start: 1980

REACTIONS (3)
  - Weight decreased [Recovered/Resolved]
  - Poor quality sleep [Recovered/Resolved]
  - Failure to thrive [Fatal]

NARRATIVE: CASE EVENT DATE: 2008
